FAERS Safety Report 10575192 (Version 2)
Quarter: 2014Q4

REPORT INFORMATION
  Report Type: Spontaneous
  Country: KP (occurrence: KP)
  Receive Date: 20141111
  Receipt Date: 20141203
  Transmission Date: 20150529
  Serious: Yes (Death, Hospitalization)
  Sender: FDA-Public Use
  Company Number: KP-CIPLA LTD.-2014KP01620

PATIENT

DRUGS (10)
  1. MEFENAMIC ACID. [Concomitant]
     Active Substance: MEFENAMIC ACID
     Dosage: 1500 MG, UNK
     Dates: start: 20131129
  2. TAMSULOSIN [Concomitant]
     Active Substance: TAMSULOSIN
     Dosage: 0.2 MG, UNK
     Dates: start: 20131223
  3. TRIAZOLAM. [Concomitant]
     Active Substance: TRIAZOLAM
     Dosage: 0.25 MG, UNK
     Dates: start: 20131219, end: 20131226
  4. LAMOTRIGINE. [Suspect]
     Active Substance: LAMOTRIGINE
     Indication: SEIZURE
     Dosage: 50 MG, UNK
     Route: 048
     Dates: start: 20141129, end: 20141230
  5. CARBAMAZEPINE. [Concomitant]
     Active Substance: CARBAMAZEPINE
     Dosage: 400 MG, UNK
     Dates: start: 20131127, end: 20131202
  6. RESPERIDONE [Concomitant]
     Dosage: 0.5 MG, UNK
     Dates: start: 20131130
  7. LOSARTAN [Concomitant]
     Active Substance: LOSARTAN
     Dosage: UNK
     Dates: start: 20131230
  8. ZOLPIDEM [Concomitant]
     Active Substance: ZOLPIDEM\ZOLPIDEM TARTRATE
     Dosage: 12.5 MG, UNK
     Dates: start: 20131210
  9. CARBAMAZEPINE. [Concomitant]
     Active Substance: CARBAMAZEPINE
     Dosage: 200 MG, UNK
     Dates: start: 20131203, end: 20131226
  10. TRAZODONE [Concomitant]
     Active Substance: TRAZODONE HYDROCHLORIDE
     Dosage: 25 MG, UNK
     Dates: start: 20131216, end: 20131219

REACTIONS (5)
  - Pneumonia aspiration [Fatal]
  - Liver injury [Unknown]
  - Renal injury [Unknown]
  - Pneumonia [Unknown]
  - Toxic epidermal necrolysis [Unknown]

NARRATIVE: CASE EVENT DATE: 20131223
